FAERS Safety Report 6862631-9 (Version None)
Quarter: 2010Q3

REPORT INFORMATION
  Report Type: 
  Country: None (occurrence: None)
  Receive Date: 20100719
  Receipt Date: 20100628
  Transmission Date: 20110219
  Serious: Yes (Hospitalization)
  Sender: FDA-Public Use
  Company Number: 7009246

PATIENT
  Age: 87 Year
  Sex: Female

DRUGS (6)
  1. LEVOTHYROXINE SODIUM [Suspect]
     Indication: THYROID DISORDER
     Dosage: ORAL
     Route: 048
  2. PREVISCAN (FLUINDIONE) (FLUINDIONE) [Suspect]
     Indication: ATRIAL FIBRILLATION
     Dosage: ORAL
     Route: 048
     Dates: start: 20090901, end: 20091221
  3. CORDARONE [Suspect]
     Indication: HYPERTENSION
     Dosage: ORAL
     Route: 048
  4. CRESTOR [Suspect]
     Indication: DYSLIPIDAEMIA
     Dosage: ORAL
     Route: 048
  5. ZESTORETIC (PRINZIDE  /00977901/) (HYDROCHLOROTHIAZIDE, LISINOPRIL) [Concomitant]
  6. AMLODIPINE [Concomitant]

REACTIONS (5)
  - FAECES DISCOLOURED [None]
  - FALL [None]
  - GASTROINTESTINAL HAEMORRHAGE [None]
  - HAEMOGLOBIN DECREASED [None]
  - INTERNATIONAL NORMALISED RATIO INCREASED [None]
